FAERS Safety Report 16893959 (Version 2)
Quarter: 2020Q1

REPORT INFORMATION
  Report Type: Report from Study
  Country: MX (occurrence: MX)
  Receive Date: 20191008
  Receipt Date: 20200116
  Transmission Date: 20200409
  Serious: Yes (Other)
  Sender: FDA-Public Use
  Company Number: MX-JNJFOC-20190223472

PATIENT
  Age: 56 Year
  Sex: Female
  Weight: 80 kg

DRUGS (1)
  1. REMICADE [Suspect]
     Active Substance: INFLIXIMAB
     Indication: ANKYLOSING SPONDYLITIS
     Route: 042
     Dates: start: 20150301, end: 20181108

REACTIONS (10)
  - Arthralgia [Recovering/Resolving]
  - Bladder neoplasm [Unknown]
  - Inflammation [Recovering/Resolving]
  - Arthropathy [Unknown]
  - Peripheral swelling [Recovering/Resolving]
  - Eye disorder [Unknown]
  - Nephrolithiasis [Unknown]
  - Haemorrhoids [Recovered/Resolved]
  - Hepatitis [Unknown]
  - Pain [Unknown]

NARRATIVE: CASE EVENT DATE: 20190826
